FAERS Safety Report 17425067 (Version 4)
Quarter: 2020Q2

REPORT INFORMATION
  Report Type: Spontaneous
  Country: JP (occurrence: JP)
  Receive Date: 20200217
  Receipt Date: 20200522
  Transmission Date: 20200713
  Serious: Yes (Disabling, Other)
  Sender: FDA-Public Use
  Company Number: JP-ROCHE-2526290

PATIENT
  Age: 5 Month
  Sex: Male

DRUGS (4)
  1. LASIX [Concomitant]
     Active Substance: FUROSEMIDE
     Indication: PREMATURE BABY
     Dosage: 0.03 ML
     Route: 042
     Dates: start: 20190716, end: 20200209
  2. LUCENTIS [Suspect]
     Active Substance: RANIBIZUMAB
     Indication: RETINOPATHY OF PREMATURITY
     Route: 050
     Dates: start: 20191213
  3. NOBELBAR [Concomitant]
     Active Substance: PHENOBARBITAL SODIUM
     Indication: PREMATURE BABY
     Dosage: 750 MG, QD
     Route: 042
     Dates: start: 20190714, end: 20191229
  4. DIAMOX SEQUELS [Concomitant]
     Active Substance: ACETAZOLAMIDE
     Indication: PREMATURE BABY
     Dosage: 10 MG, QD
     Route: 042
     Dates: start: 20191106, end: 20200120

REACTIONS (3)
  - Vitreous opacities [Unknown]
  - Retinal tear [Unknown]
  - Retinal detachment [Not Recovered/Not Resolved]

NARRATIVE: CASE EVENT DATE: 20191216
